FAERS Safety Report 26110947 (Version 1)
Quarter: 2025Q4

REPORT INFORMATION
  Report Type: Report from Study
  Country: EU (occurrence: EU)
  Receive Date: 20251202
  Receipt Date: 20251202
  Transmission Date: 20260119
  Serious: Yes (Hospitalization)
  Sender: ABBVIE
  Company Number: EU-ABBVIE-6571220

PATIENT
  Age: 65 Year
  Sex: Female

DRUGS (1)
  1. FOSCARBIDOPA\FOSLEVODOPA [Suspect]
     Active Substance: FOSCARBIDOPA\FOSLEVODOPA
     Indication: Parkinson^s disease
     Dosage: DAILY DOSE: 1.286,4 MG/DAY ?CRL: 0.17ML/H ?CRB: 0.25ML/H ?CRH: 0.27ML/H ?ED: 0ML LD: 0.3ML
     Route: 058
     Dates: start: 20250526

REACTIONS (3)
  - Asthenia [Not Recovered/Not Resolved]
  - Dyskinesia [Not Recovered/Not Resolved]
  - Poor quality sleep [Not Recovered/Not Resolved]

NARRATIVE: CASE EVENT DATE: 20251101
